FAERS Safety Report 21387820 (Version 3)
Quarter: 2022Q4

REPORT INFORMATION
  Report Type: Report from Study
  Country: KR (occurrence: KR)
  Receive Date: 20220928
  Receipt Date: 20221010
  Transmission Date: 20230113
  Serious: Yes (Death, Hospitalization, Other)
  Sender: FDA-Public Use
  Company Number: KR-TAKEDA-2022TUS067647

PATIENT
  Age: 32 Year
  Sex: Male

DRUGS (1)
  1. IDURSULFASE [Suspect]
     Active Substance: IDURSULFASE
     Indication: Mucopolysaccharidosis II
     Dosage: UNK, 1/WEEK
     Route: 041
     Dates: end: 20220918

REACTIONS (3)
  - Asymptomatic COVID-19 [Fatal]
  - Ascites [Fatal]
  - Urinary retention [Fatal]

NARRATIVE: CASE EVENT DATE: 20220913
